FAERS Safety Report 8923973 (Version 1)
Quarter: 2012Q4

REPORT INFORMATION
  Report Type: 
  Country: ES (occurrence: ES)
  Receive Date: 20121126
  Receipt Date: 20121126
  Transmission Date: 20130627
  Serious: Yes (Hospitalization)
  Sender: FDA-Public Use
  Company Number: ES-ELI_LILLY_AND_COMPANY-ES201211004665

PATIENT
  Sex: Female
  Weight: 69 kg

DRUGS (7)
  1. FORSTEO [Suspect]
     Indication: OSTEOPOROSIS
     Dosage: 20 ug, qd
     Route: 058
     Dates: start: 20120714, end: 20120921
  2. LEVOTHROID [Concomitant]
     Indication: THYROID DISORDER
     Dosage: 100 mg, qd
  3. ALDACTONE [Concomitant]
     Indication: CARDIAC DISORDER
     Dosage: UNK, qd
  4. TORASEMIDE [Concomitant]
     Indication: FLUID RETENTION
  5. PARACETAMOL [Concomitant]
     Indication: PAIN
  6. NOLOTIL [Concomitant]
     Indication: PAIN
  7. SERETIDE [Concomitant]
     Indication: BRONCHIAL DISORDER
     Route: 055

REACTIONS (3)
  - Cholelithiasis obstructive [Recovered/Resolved]
  - Pulmonary oedema [Recovered/Resolved]
  - Pneumonia [Recovered/Resolved]
